FAERS Safety Report 7232975-X (Version None)
Quarter: 2011Q1

REPORT INFORMATION
  Report Type: 
  Country: None (occurrence: None)
  Receive Date: 20110119
  Receipt Date: 20110104
  Transmission Date: 20110831
  Serious: Yes (Hospitalization)
  Sender: FDA-Public Use
  Company Number: US-ACTELION-A-NJ2010-42683

PATIENT

DRUGS (4)
  1. BOSENTAN TABLET 125 MG US [Suspect]
     Indication: PULMONARY ARTERIAL HYPERTENSION
     Dosage: 125 MG, BID
     Route: 048
     Dates: start: 20101129
  2. REVATIO [Concomitant]
  3. COUMADIN [Concomitant]
  4. BOSENTAN TABLET 125 MG US [Suspect]
     Dosage: 62.5 MG, BID
     Route: 048
     Dates: start: 20101013, end: 20101128

REACTIONS (5)
  - RIGHT VENTRICULAR FAILURE [None]
  - PULMONARY HYPERTENSION [None]
  - DYSPNOEA [None]
  - COR PULMONALE [None]
  - OEDEMA [None]
